FAERS Safety Report 5237541-3 (Version None)
Quarter: 2007Q1

REPORT INFORMATION
  Report Type: 
  Country: None (occurrence: None)
  Receive Date: 20070213
  Receipt Date: 20070202
  Transmission Date: 20070707
  Serious: Yes (Hospitalization)
  Sender: FDA-Public Use
  Company Number: JP-PFIZER INC-2007006652

PATIENT
  Age: 42 Year
  Sex: Female

DRUGS (2)
  1. SULFASALAZINE [Suspect]
     Indication: COLITIS ULCERATIVE
     Dosage: DAILY DOSE:4GRAM
     Route: 048
  2. LAC B [Concomitant]
     Route: 048
     Dates: start: 20061009

REACTIONS (2)
  - COLITIS ULCERATIVE [None]
  - WHITE BLOOD CELL COUNT DECREASED [None]
